FAERS Safety Report 18651984 (Version 1)
Quarter: 2020Q4

REPORT INFORMATION
  Report Type: Spontaneous
  Country: DE (occurrence: DE)
  Receive Date: 20201222
  Receipt Date: 20201222
  Transmission Date: 20210114
  Serious: Yes (Hospitalization)
  Sender: FDA-Public Use
  Company Number: NVSC2020DE332093

PATIENT
  Age: 90 Year
  Sex: Male

DRUGS (4)
  1. XARELTO [Suspect]
     Active Substance: RIVAROXABAN
     Indication: PRODUCT USED FOR UNKNOWN INDICATION
     Dosage: UNK
     Route: 065
  2. SILOMAT GEGEN REIZHUSTEN [Concomitant]
     Indication: PRODUCT USED FOR UNKNOWN INDICATION
     Dosage: UNK, QD (0-0-0-1)
     Route: 065
  3. AMBROXOL [Concomitant]
     Active Substance: AMBROXOL
     Indication: PRODUCT USED FOR UNKNOWN INDICATION
     Dosage: 75 MG, QD (1-0-0-0)
     Route: 065
  4. CEFPODOXIME PROXETIL. [Suspect]
     Active Substance: CEFPODOXIME PROXETIL
     Indication: PRODUCT USED FOR UNKNOWN INDICATION
     Dosage: 200 MG, BID (1-0-1-0)
     Route: 065

REACTIONS (3)
  - Anaemia [Unknown]
  - Diarrhoea [Unknown]
  - Haematochezia [Unknown]
